FAERS Safety Report 8366726-2 (Version None)
Quarter: 2012Q2

REPORT INFORMATION
  Report Type: 
  Country: None (occurrence: None)
  Receive Date: 20120517
  Receipt Date: 20120515
  Transmission Date: 20120825
  Serious: No
  Sender: FDA-Public Use
  Company Number: US-PFIZER INC-2012029516

PATIENT
  Sex: Female

DRUGS (6)
  1. KEPPRA [Concomitant]
     Indication: CONVULSION
     Dosage: UNK
  2. LYRICA [Suspect]
     Indication: PAIN
     Dosage: 400 MG, 1X/DAY
     Route: 048
     Dates: start: 20050101
  3. VIMPAT [Concomitant]
     Dosage: UNK
  4. LYRICA [Suspect]
     Indication: NEURALGIA
  5. CELEBREX [Concomitant]
     Dosage: UNK
  6. METHIMAZOLE [Concomitant]
     Indication: HYPERTHYROIDISM
     Dosage: UNK

REACTIONS (3)
  - FEELING ABNORMAL [None]
  - DRUG EFFECT DECREASED [None]
  - PARAESTHESIA [None]
